FAERS Safety Report 4525978-7 (Version None)
Quarter: 2004Q4

REPORT INFORMATION
  Report Type: 
  Country: None (occurrence: None)
  Receive Date: 20041214
  Receipt Date: 20041202
  Transmission Date: 20050328
  Serious: Yes (Hospitalization)
  Sender: FDA-Public Use
  Company Number: FR-JNJFOC-20041101851

PATIENT
  Sex: Female
  Weight: 53 kg

DRUGS (8)
  1. BLINDED; ABCIXIMA [Suspect]
     Indication: ACUTE MYOCARDIAL INFARCTION
     Route: 042
  2. RETEPLASE [Suspect]
     Indication: ACUTE MYOCARDIAL INFARCTION
     Route: 042
  3. PLACEBO [Suspect]
     Indication: ACUTE MYOCARDIAL INFARCTION
     Route: 042
  4. ASPIRIN [Concomitant]
     Indication: MYOCARDIAL INFARCTION
     Route: 042
  5. PLAVIX [Concomitant]
     Indication: MYOCARDIAL INFARCTION
     Route: 049
  6. OMEPRAZOLE [Concomitant]
     Route: 049
  7. TAHOR [Concomitant]
     Route: 049
  8. ACEBUTOLOL [Concomitant]
     Indication: MYOCARDIAL INFARCTION
     Route: 049

REACTIONS (4)
  - CATHETER SITE HAEMATOMA [None]
  - DRUG INTERACTION [None]
  - HAEMOGLOBIN DECREASED [None]
  - VASCULAR PSEUDOANEURYSM [None]
